FAERS Safety Report 25672264 (Version 2)
Quarter: 2025Q3

REPORT INFORMATION
  Report Type: Spontaneous
  Country: US (occurrence: US)
  Receive Date: 20250812
  Receipt Date: 20250911
  Transmission Date: 20251020
  Serious: No
  Sender: GALDERMA
  Company Number: US-GALDERMA-US2025010496

PATIENT

DRUGS (1)
  1. NEMLUVIO [Suspect]
     Active Substance: NEMOLIZUMAB-ILTO
     Indication: Dermatitis atopic
     Route: 058

REACTIONS (5)
  - Myalgia [Unknown]
  - Headache [Unknown]
  - Pruritus [Unknown]
  - Eczema [Unknown]
  - Inappropriate schedule of product administration [Recovered/Resolved]
